FAERS Safety Report 7416963-6 (Version None)
Quarter: 2011Q2

REPORT INFORMATION
  Report Type: 
  Country: None (occurrence: None)
  Receive Date: 20110415
  Receipt Date: 20110411
  Transmission Date: 20111010
  Serious: Yes (Other)
  Sender: FDA-Public Use
  Company Number: PL-ASTELLAS-2011EU001720

PATIENT
  Age: 64 Year
  Sex: Male
  Weight: 85 kg

DRUGS (2)
  1. MYCAMINE [Suspect]
     Indication: FUNGAL INFECTION
     Dosage: 100 DF, UID/QD
     Route: 042
     Dates: start: 20110221, end: 20110224
  2. CASPOFUNGIN [Concomitant]
     Indication: FUNGAL INFECTION
     Dosage: UNK
     Route: 065

REACTIONS (2)
  - SWELLING FACE [None]
  - SKIN LESION [None]
